FAERS Safety Report 15001166 (Version 8)
Quarter: 2020Q2

REPORT INFORMATION
  Report Type: Report from Study
  Country: CA (occurrence: CA)
  Receive Date: 20180612
  Receipt Date: 20200428
  Transmission Date: 20200713
  Serious: Yes (Hospitalization, Other)
  Sender: FDA-Public Use
  Company Number: CA-SA-2016SA064933

PATIENT
  Age: 39 Year
  Sex: Female

DRUGS (5)
  1. ALEMTUZUMAB [Suspect]
     Active Substance: ALEMTUZUMAB
     Dosage: UNK
     Route: 041
     Dates: start: 201503, end: 2015
  2. METHYLPREDNISOLONE SODIUM SUCCINATE. [Suspect]
     Active Substance: METHYLPREDNISOLONE SODIUM SUCCINATE
     Indication: PREMEDICATION
     Dosage: 1 G
     Route: 041
     Dates: start: 20160329, end: 20160331
  3. SYNTHROID [Concomitant]
     Active Substance: LEVOTHYROXINE SODIUM
     Indication: THYROIDITIS
     Dosage: 80 MCG, QD
     Route: 048
  4. ALEMTUZUMAB [Suspect]
     Active Substance: ALEMTUZUMAB
     Indication: RELAPSING-REMITTING MULTIPLE SCLEROSIS
     Dosage: 12 MG, QD
     Route: 041
     Dates: start: 20160329, end: 20160331
  5. CIPRALEX [Concomitant]
     Active Substance: ESCITALOPRAM OXALATE
     Dosage: 10 MG, QD

REACTIONS (21)
  - Iron deficiency [Unknown]
  - Urine analysis abnormal [Not Recovered/Not Resolved]
  - Rash [Recovering/Resolving]
  - Platelet count decreased [Recovered/Resolved]
  - Skin discolouration [Unknown]
  - Pain in extremity [Recovered/Resolved]
  - Bacteriuria [Not Recovered/Not Resolved]
  - Dysgeusia [Recovering/Resolving]
  - Drug monitoring procedure not performed [Recovering/Resolving]
  - Abdominal pain upper [Recovering/Resolving]
  - Petechiae [Recovering/Resolving]
  - Cells in urine [Not Recovered/Not Resolved]
  - Hot flush [Recovering/Resolving]
  - Nausea [Recovered/Resolved]
  - Menstrual disorder [Recovered/Resolved]
  - Lymphocyte count decreased [Unknown]
  - Malaise [Recovering/Resolving]
  - Immune thrombocytopenia [Not Recovered/Not Resolved]
  - Thyroid function test abnormal [Recovered/Resolved]
  - Coronavirus infection [Recovering/Resolving]
  - Blood test abnormal [Recovered/Resolved]

NARRATIVE: CASE EVENT DATE: 20160329
